FAERS Safety Report 8275189-7 (Version None)
Quarter: 2012Q2

REPORT INFORMATION
  Report Type: 
  Country: None (occurrence: None)
  Receive Date: 20120411
  Receipt Date: 20120404
  Transmission Date: 20120825
  Serious: Yes (Other)
  Sender: FDA-Public Use
  Company Number: US-PFIZER INC-2012086158

PATIENT
  Sex: Male

DRUGS (7)
  1. GLUCOSAMINE [Concomitant]
     Dosage: UNK
  2. ASPIRIN [Concomitant]
     Dosage: UNK
  3. LOVAZA [Concomitant]
     Dosage: UNK
  4. LIPITOR [Suspect]
     Dosage: 20 MG, 1X/DAY (1 PO Q DAILY)
     Route: 048
  5. FLONASE [Concomitant]
     Dosage: UNK
  6. CO-Q-10 [Concomitant]
     Dosage: UNK
  7. VITAMIN D [Concomitant]
     Dosage: 1000 UNK, UNK

REACTIONS (2)
  - CORONARY ARTERY DISEASE [None]
  - EYE DISORDER [None]
